FAERS Safety Report 9040078 (Version 1)
Quarter: 2013Q1

REPORT INFORMATION
  Report Type: Report from Study
  Country: US (occurrence: US)
  Receive Date: 20130130
  Receipt Date: 20130130
  Transmission Date: 20140127
  Serious: Yes (Other)
  Sender: FDA-Public Use
  Company Number: US-ABBOTT-12P-163-0951444-00

PATIENT
  Age: 62 Year
  Sex: Female

DRUGS (13)
  1. HUMIRA 40 MG/0.8 ML PEN [Suspect]
     Indication: PSORIATIC ARTHROPATHY
     Dates: start: 201202
  2. BYSTOLIC [Concomitant]
     Indication: HYPERTENSION
     Dosage: 10 MG DAILY
  3. NIASPAN [Concomitant]
     Indication: BLOOD CHOLESTEROL INCREASED
     Dosage: 500 MG DAILY
  4. ARAVA [Concomitant]
     Indication: PSORIATIC ARTHROPATHY
     Dosage: 20 MG DAILY
  5. NAPROSYN-EC [Concomitant]
     Indication: PSORIATIC ARTHROPATHY
     Dosage: 500 MG DAILY
  6. METFORMIN [Concomitant]
     Indication: DIABETES MELLITUS
     Dosage: 500 MG DAILY
  7. ZANTAC [Concomitant]
     Indication: URTICARIA
     Dosage: 300 MG DAILY
  8. DOXEPIN [Concomitant]
     Indication: URTICARIA
     Dosage: 25 MG DAILY
  9. ZYRTEC [Concomitant]
     Indication: URTICARIA
     Dosage: 10 MG DAILY
  10. CALCIUM [Concomitant]
     Indication: PRODUCT USED FOR UNKNOWN INDICATION
  11. VITAMIN D3 [Concomitant]
     Indication: PRODUCT USED FOR UNKNOWN INDICATION
     Dosage: DAILY
  12. FLAX SEED [Concomitant]
     Indication: PRODUCT USED FOR UNKNOWN INDICATION
     Dosage: DAILY
  13. MULTIVITAMIN [Concomitant]
     Indication: PRODUCT USED FOR UNKNOWN INDICATION
     Dosage: DAILY

REACTIONS (5)
  - Blood pressure increased [Unknown]
  - Injection site pain [Recovered/Resolved]
  - Injection site erythema [Recovered/Resolved]
  - Injection site swelling [Recovered/Resolved]
  - Injection site pruritus [Recovered/Resolved]
